FAERS Safety Report 7884625-7 (Version None)
Quarter: 2011Q4

REPORT INFORMATION
  Report Type: 
  Country: None (occurrence: None)
  Receive Date: 20111102
  Receipt Date: 20111025
  Transmission Date: 20120403
  Serious: Yes (Other)
  Sender: FDA-Public Use
  Company Number: NL-MERCK-1110NLD00022

PATIENT
  Age: 55 Year
  Sex: Female
  Weight: 83 kg

DRUGS (5)
  1. PRAVASTATIN SODIUM [Suspect]
     Route: 048
     Dates: start: 20020101, end: 20100101
  2. CARBASPIRIN CALCIUM [Concomitant]
     Route: 048
     Dates: start: 20040101
  3. ZETIA [Suspect]
     Route: 048
     Dates: start: 20020101, end: 20100101
  4. DIPYRIDAMOLE [Concomitant]
     Route: 048
     Dates: start: 20060101
  5. LOSARTAN POTASSIUM [Concomitant]
     Route: 048
     Dates: start: 20040101

REACTIONS (1)
  - MUSCLE DISORDER [None]
